FAERS Safety Report 6697339-6 (Version None)
Quarter: 2010Q2

REPORT INFORMATION
  Report Type: 
  Country: None (occurrence: None)
  Receive Date: 20100426
  Receipt Date: 20091105
  Transmission Date: 20101027
  Serious: Yes (Hospitalization)
  Sender: FDA-Public Use
  Company Number: FR-PFIZER INC-2010050167

PATIENT
  Age: 93 Year
  Sex: Male

DRUGS (8)
  1. ESTRACYT [Suspect]
     Dosage: 280 MG
     Route: 048
     Dates: end: 20090916
  2. SERESTA [Concomitant]
     Dosage: UNK
  3. SPECIAFOLDINE [Concomitant]
     Dosage: UNK
  4. ATHYMIL [Concomitant]
     Dosage: UNK
  5. CODOLIPRANE [Concomitant]
     Dosage: UNK
  6. FORLAX [Concomitant]
     Dosage: UNK
  7. ALOPLASTINE [Concomitant]
     Dosage: UNK
  8. UVEDOSE [Concomitant]
     Dosage: UNK

REACTIONS (9)
  - BLOOD PRESSURE INCREASED [None]
  - CEREBELLAR ISCHAEMIA [None]
  - CEREBRAL ATROPHY [None]
  - CEREBRAL INFARCTION [None]
  - FIBRIN D DIMER INCREASED [None]
  - HEART RATE INCREASED [None]
  - ISCHAEMIC STROKE [None]
  - LEUKOENCEPHALOPATHY [None]
  - VASCULAR DEMENTIA [None]
